FAERS Safety Report 20496636 (Version 3)
Quarter: 2022Q1

REPORT INFORMATION
  Report Type: Report from Study
  Country: US (occurrence: US)
  Receive Date: 20220221
  Receipt Date: 20220317
  Transmission Date: 20220423
  Serious: Yes (Hospitalization, Other)
  Sender: FDA-Public Use
  Company Number: US-BAUSCH-BL-2022-004676

PATIENT
  Age: 74 Year
  Sex: Female
  Weight: 79.4 kg

DRUGS (3)
  1. UCERIS [Suspect]
     Active Substance: BUDESONIDE
     Indication: Bacterial colitis
     Dosage: STARTED 8 YEARS BACK (FROM FU DATE 02/MAR/2022)
     Route: 048
     Dates: end: 20220212
  2. UCERIS [Suspect]
     Active Substance: BUDESONIDE
     Dosage: RESTARTED THE DRUG ON 17/FEB/2022
     Route: 048
  3. CIPRO [Suspect]
     Active Substance: CIPROFLOXACIN HYDROCHLORIDE
     Indication: Urinary tract infection
     Route: 065

REACTIONS (4)
  - Encephalitis [Recovered/Resolved]
  - Therapy interrupted [Recovered/Resolved]
  - Product use in unapproved indication [Not Recovered/Not Resolved]
  - Product use issue [Recovered/Resolved]

NARRATIVE: CASE EVENT DATE: 20210701
